FAERS Safety Report 4439551-2 (Version None)
Quarter: 2004Q3

REPORT INFORMATION
  Report Type: 
  Country: None (occurrence: None)
  Receive Date: 20040830
  Receipt Date: 20040813
  Transmission Date: 20050211
  Serious: Yes (Hospitalization)
  Sender: FDA-Public Use
  Company Number: F01200402447

PATIENT
  Age: 67 Year
  Sex: Male

DRUGS (7)
  1. OXALIPLATIN SOLUTION 263MG [Suspect]
     Indication: COLON CANCER
     Dosage: 263 MG Q3W
     Route: 042
     Dates: start: 20030803, end: 20030803
  2. OXALIPLATIN SOLUTION 263MG [Suspect]
     Indication: SURGERY
     Dosage: 263 MG Q3W
     Route: 042
     Dates: start: 20030803, end: 20030803
  3. CAPECTABINE TABLET 2000MG [Suspect]
     Dosage: 2000 MG TWICE A DAY PER ORAL FROM D1 TO D15
     Route: 048
     Dates: start: 20040803
  4. VITAMIN E [Concomitant]
  5. FERROGRAD (FERROUS SULFATE EXSICCATED) [Concomitant]
  6. ULCID (NIZATIDINE) [Concomitant]
  7. ZIMOVANE (ZOPICLONE) [Concomitant]

REACTIONS (1)
  - LARYNGOSPASM [None]
